FAERS Safety Report 19290907 (Version 1)
Quarter: 2021Q2

REPORT INFORMATION
  Report Type: Spontaneous
  Country: US (occurrence: US)
  Receive Date: 20210523
  Receipt Date: 20210523
  Transmission Date: 20210717
  Serious: Yes (Other)
  Sender: FDA-Public Use
  Company Number: US-CELGENEUS-USA-20210504407

PATIENT
  Sex: Female

DRUGS (8)
  1. THALOMID [Suspect]
     Active Substance: THALIDOMIDE
     Indication: LEPROSY
     Dosage: 100 MILLIGRAM
     Route: 048
     Dates: start: 201201
  2. THALOMID [Suspect]
     Active Substance: THALIDOMIDE
     Indication: OFF LABEL USE
     Dosage: 300?100 MG
     Route: 048
     Dates: start: 201206
  3. THALOMID [Suspect]
     Active Substance: THALIDOMIDE
     Dosage: 250?200MG
     Route: 048
     Dates: start: 201905
  4. THALOMID [Suspect]
     Active Substance: THALIDOMIDE
     Dosage: 350?300 MG
     Route: 048
     Dates: start: 201707
  5. THALOMID [Suspect]
     Active Substance: THALIDOMIDE
     Dosage: 150?100 MG
     Route: 048
     Dates: start: 201911
  6. THALOMID [Suspect]
     Active Substance: THALIDOMIDE
     Dosage: 400? 300 MG
     Route: 048
     Dates: start: 201403
  7. THALOMID [Suspect]
     Active Substance: THALIDOMIDE
     Dosage: 50 MILLIGRAM
     Route: 048
     Dates: start: 202008
  8. THALOMID [Suspect]
     Active Substance: THALIDOMIDE
     Dosage: 100?400 MG
     Route: 048
     Dates: start: 201506

REACTIONS (1)
  - Neuropathy peripheral [Not Recovered/Not Resolved]
